FAERS Safety Report 6636280-1 (Version None)
Quarter: 2010Q1

REPORT INFORMATION
  Report Type: 
  Country: None (occurrence: None)
  Receive Date: 20100311
  Receipt Date: 20100302
  Transmission Date: 20100710
  Serious: Yes (Hospitalization)
  Sender: FDA-Public Use
  Company Number: CIP10000279

PATIENT
  Age: 75 Year
  Sex: Female

DRUGS (20)
  1. MACRODANTIN [Suspect]
     Dosage: 50 MG AT BEDTIME, ORAL
     Route: 048
     Dates: start: 20080101
  2. ALBUTEROL /00139501/ (SALBUTAMOL) [Concomitant]
  3. ADVAIR DISKUS 100/50 [Concomitant]
  4. SPIRIVA [Concomitant]
  5. DILTIAZEM [Concomitant]
  6. ISOSORBIDE (ISOSORBIDE) [Concomitant]
  7. LASIX [Concomitant]
  8. PLAVIX [Concomitant]
  9. ASPIRIN [Concomitant]
  10. POTASSIUM (POTASSIUM) [Concomitant]
  11. TUMS /00108001/ (CALCIUM CARBONATE) [Concomitant]
  12. PRILOSEC /00661201/ (OMEPRAZOLE) [Concomitant]
  13. DICYCLOMINE /00068601/ (DICYCLOVERINE) [Concomitant]
  14. ZYRTEC [Concomitant]
  15. MIRAPEX /01356401/ (PRAMIPEXOLE) [Concomitant]
  16. PRAVASTATIN [Concomitant]
  17. CARVEDILOL [Concomitant]
  18. MULTIVITAMIN /00097801/ (ASCORBIC ACID, CALCIUM PANTHOTHENATE, ERGOCAL [Concomitant]
  19. FORTICAL /00371903/ (CALCITONIN, SALMON) [Concomitant]
  20. NASACORT [Concomitant]

REACTIONS (12)
  - ACUTE RESPIRATORY FAILURE [None]
  - ASPIRATION [None]
  - CHRONIC OBSTRUCTIVE PULMONARY DISEASE [None]
  - CONDITION AGGRAVATED [None]
  - DIASTOLIC DYSFUNCTION [None]
  - NAUSEA [None]
  - PNEUMONIA [None]
  - SINUSITIS [None]
  - SPUTUM DISCOLOURED [None]
  - SPUTUM PURULENT [None]
  - VIRAL INFECTION [None]
  - VOMITING [None]
